FAERS Safety Report 9056434 (Version 1)
Quarter: 2013Q1

REPORT INFORMATION
  Report Type: Spontaneous
  Country: US (occurrence: US)
  Receive Date: 20130204
  Receipt Date: 20130204
  Transmission Date: 20140127
  Serious: Yes (Hospitalization)
  Sender: FDA-Public Use
  Company Number: US-ASTRAZENECA-2013SE05832

PATIENT
  Age: 79 Year
  Sex: Male
  Weight: 90.7 kg

DRUGS (9)
  1. OMEPRAZOLE [Suspect]
     Indication: HYPERCHLORHYDRIA
     Route: 048
  2. OMEPRAZOLE [Suspect]
     Indication: ULCER HAEMORRHAGE
     Route: 048
  3. SYMBICORT PMDI [Suspect]
     Indication: CHRONIC OBSTRUCTIVE PULMONARY DISEASE
     Dosage: 160 MCG, 1 PUFF, TWO TIMES A DAY
     Route: 055
     Dates: start: 20121215
  4. FORMALDEHYDE [Suspect]
     Route: 065
     Dates: start: 201106
  5. PREDNISONE [Concomitant]
     Indication: CHRONIC OBSTRUCTIVE PULMONARY DISEASE
     Route: 048
     Dates: start: 1973
  6. TYLENOL [Concomitant]
     Indication: BONE PAIN
     Route: 048
  7. COMBIVENT [Concomitant]
     Indication: RESPIRATORY DISORDER
     Dosage: AS REQUIRED
     Route: 055
  8. SERTRALINE [Concomitant]
     Indication: POST-TRAUMATIC STRESS DISORDER
     Route: 048
     Dates: start: 2011
  9. TERAZOSIN [Concomitant]
     Indication: RENAL DISORDER
     Route: 048
     Dates: start: 201201

REACTIONS (11)
  - Dyspnoea [Unknown]
  - Tremor [Recovered/Resolved]
  - Renal disorder [Unknown]
  - Liver disorder [Unknown]
  - Dyspnoea exertional [Unknown]
  - Asthenia [Recovered/Resolved]
  - Nodule [Unknown]
  - Facial bones fracture [Unknown]
  - Fall [Unknown]
  - Malaise [Recovering/Resolving]
  - Off label use [Not Recovered/Not Resolved]
